FAERS Safety Report 16290857 (Version 7)
Quarter: 2019Q4

REPORT INFORMATION
  Report Type: Spontaneous
  Country: US (occurrence: US)
  Receive Date: 20190509
  Receipt Date: 20191018
  Transmission Date: 20200122
  Serious: Yes (Other)
  Sender: FDA-Public Use
  Company Number: US-PFIZER INC-2019195096

PATIENT
  Age: 62 Year
  Sex: Female

DRUGS (2)
  1. IBRANCE [Suspect]
     Active Substance: PALBOCICLIB
     Dosage: UNK
  2. FASLODEX [Suspect]
     Active Substance: FULVESTRANT
     Dosage: UNK

REACTIONS (14)
  - Cardiac failure congestive [Unknown]
  - Sinusitis [Unknown]
  - Peripheral swelling [Unknown]
  - Asthenia [Unknown]
  - Nasopharyngitis [Unknown]
  - Nodule [Unknown]
  - Depressed mood [Unknown]
  - Weight decreased [Unknown]
  - Rhinorrhoea [Unknown]
  - Oropharyngeal pain [Unknown]
  - Stomatitis [Unknown]
  - Nausea [Unknown]
  - Malaise [Unknown]
  - Fluid retention [Unknown]

NARRATIVE: CASE EVENT DATE: 201907
